FAERS Safety Report 24641708 (Version 1)
Quarter: 2024Q4

REPORT INFORMATION
  Report Type: Spontaneous
  Country: US (occurrence: None)
  Receive Date: 20241120
  Receipt Date: 20241120
  Transmission Date: 20250114
  Serious: Yes (Hospitalization)
  Sender: Public
  Company Number: None

PATIENT
  Age: 5 Year
  Sex: Male
  Weight: 11.9 kg

DRUGS (4)
  1. CYCLOPHOSPHAMIDE [Suspect]
     Active Substance: CYCLOPHOSPHAMIDE
     Dates: end: 20240925
  2. ZINECARD [Suspect]
     Active Substance: DEXRAZOXANE HYDROCHLORIDE
     Dates: end: 20240925
  3. DOXORUBICIN HYDROCHLORIDE [Suspect]
     Active Substance: DOXORUBICIN HYDROCHLORIDE
     Dates: end: 20240925
  4. VINCRISTINE SULFATE [Suspect]
     Active Substance: VINCRISTINE SULFATE
     Dates: end: 20240925

REACTIONS (12)
  - Respiratory rate increased [None]
  - Abdominal distension [None]
  - Neoplasm progression [None]
  - Tumour necrosis [None]
  - Lung opacity [None]
  - Ascites [None]
  - Hepatic mass [None]
  - Respiratory failure [None]
  - Abdominal compartment syndrome [None]
  - Renal artery stenosis [None]
  - Fluid imbalance [None]
  - Acute kidney injury [None]

NARRATIVE: CASE EVENT DATE: 20240925
